FAERS Safety Report 6912015-X (Version None)
Quarter: 2010Q3

REPORT INFORMATION
  Report Type: 
  Country: None (occurrence: None)
  Receive Date: 20100806
  Receipt Date: 20071115
  Transmission Date: 20110219
  Serious: Yes (Other)
  Sender: FDA-Public Use
  Company Number: US-PFIZER INC-2007096195

PATIENT
  Sex: Female
  Weight: 90.909 kg

DRUGS (3)
  1. DILANTIN [Suspect]
     Indication: GRAND MAL CONVULSION
     Dosage: EVERY DAY
  2. MEBARAL [Concomitant]
  3. ASPIRIN [Concomitant]

REACTIONS (5)
  - GRAND MAL CONVULSION [None]
  - INSOMNIA [None]
  - STRESS [None]
  - WEIGHT INCREASED [None]
  - WEIGHT LOSS POOR [None]
